FAERS Safety Report 21628525 (Version 2)
Quarter: 2022Q4

REPORT INFORMATION
  Report Type: Spontaneous
  Country: AE (occurrence: AE)
  Receive Date: 20221122
  Receipt Date: 20221129
  Transmission Date: 20230113
  Serious: Yes (Hospitalization, Other)
  Sender: FDA-Public Use
  Company Number: AE-ORGANON-O2211ARE001839

PATIENT
  Age: 6 Year
  Sex: Male

DRUGS (2)
  1. SINGULAIR [Suspect]
     Active Substance: MONTELUKAST SODIUM
     Indication: Asthma
     Dosage: UNK
     Route: 048
     Dates: end: 2020
  2. SINGULAIR [Suspect]
     Active Substance: MONTELUKAST SODIUM
     Indication: Asthma
     Dosage: UNK UNK, QD
     Route: 048
     Dates: start: 20221102, end: 202211

REACTIONS (5)
  - Platelet count abnormal [Recovered/Resolved]
  - Thrombocytopenia [Unknown]
  - Limb injury [Unknown]
  - Psychomotor hyperactivity [Unknown]
  - Contusion [Unknown]

NARRATIVE: CASE EVENT DATE: 20221101
